FAERS Safety Report 20382452 (Version 1)
Quarter: 2022Q1

REPORT INFORMATION
  Report Type: Report from Study
  Country: CN (occurrence: CN)
  Receive Date: 20220127
  Receipt Date: 20220127
  Transmission Date: 20220423
  Serious: Yes (Other)
  Sender: FDA-Public Use
  Company Number: CN-PFIZER INC-202200069266

PATIENT
  Age: 34 Year
  Sex: Male

DRUGS (3)
  1. PACLITAXEL [Suspect]
     Active Substance: PACLITAXEL
     Indication: Thymoma
     Dosage: DAY 1, TREATMENT CYCLE WAS REPEATED EVERY 3 WEEKS
     Route: 042
  2. BEVACIZUMAB [Suspect]
     Active Substance: BEVACIZUMAB
     Indication: Thymoma
     Dosage: DAY 1, TREATMENT CYCLE WAS REPEATED EVERY 3 WEEKS
     Route: 042
  3. CARBOPLATIN [Suspect]
     Active Substance: CARBOPLATIN
     Indication: Thymoma
     Dosage: AREA UNDER THE CURVE, 6
     Route: 042

REACTIONS (1)
  - Myasthenia gravis [Unknown]
